FAERS Safety Report 18986208 (Version 3)
Quarter: 2021Q1

REPORT INFORMATION
  Report Type: Spontaneous
  Country: CH (occurrence: CH)
  Receive Date: 20210309
  Receipt Date: 20210331
  Transmission Date: 20210420
  Serious: Yes (Hospitalization, Other)
  Sender: FDA-Public Use
  Company Number: CH-ABBVIE-21K-151-3799627-00

PATIENT
  Age: 76 Year
  Sex: Male

DRUGS (15)
  1. VENCLYXTO [Suspect]
     Active Substance: VENETOCLAX
     Route: 048
     Dates: start: 2021
  2. AZACITIDINE. [Suspect]
     Active Substance: AZACITIDINE
     Route: 065
     Dates: start: 20210301
  3. RAMIPRIL. [Concomitant]
     Active Substance: RAMIPRIL
     Indication: PRODUCT USED FOR UNKNOWN INDICATION
  4. ASPIRIN CARDIO [Concomitant]
     Active Substance: ASPIRIN
     Indication: PRODUCT USED FOR UNKNOWN INDICATION
     Dosage: MORNING
  5. VENCLYXTO [Suspect]
     Active Substance: VENETOCLAX
     Route: 048
     Dates: start: 20210129, end: 2021
  6. AZACITIDINE. [Suspect]
     Active Substance: AZACITIDINE
     Indication: PRODUCT USED FOR UNKNOWN INDICATION
     Route: 065
     Dates: start: 20201116, end: 2020
  7. VENCLYXTO [Suspect]
     Active Substance: VENETOCLAX
     Dosage: AFTER CRESEMBA DISCONTINUATION
     Route: 048
     Dates: start: 20210210, end: 2021
  8. VENCLYXTO [Suspect]
     Active Substance: VENETOCLAX
     Dosage: THIRD CYCLE
     Route: 048
     Dates: start: 20201214, end: 20201222
  9. VENCLYXTO [Suspect]
     Active Substance: VENETOCLAX
     Dosage: SECOND CYCLE
     Route: 048
     Dates: start: 20201116, end: 2020
  10. AZACITIDINE. [Suspect]
     Active Substance: AZACITIDINE
     Route: 065
     Dates: start: 20201214
  11. VENCLYXTO [Suspect]
     Active Substance: VENETOCLAX
     Indication: ACUTE MYELOID LEUKAEMIA
     Dosage: DAILY
     Route: 048
     Dates: start: 20201029, end: 2020
  12. CRESEMBA [Suspect]
     Active Substance: ISAVUCONAZONIUM SULFATE
     Indication: PRODUCT USED FOR UNKNOWN INDICATION
     Route: 042
     Dates: start: 20210107, end: 20210224
  13. JANUMET [Concomitant]
     Active Substance: METFORMIN HYDROCHLORIDE\SITAGLIPTIN PHOSPHATE
     Indication: PRODUCT USED FOR UNKNOWN INDICATION
     Dates: start: 20200129
  14. METFORMIN [Concomitant]
     Active Substance: METFORMIN HYDROCHLORIDE
     Indication: PRODUCT USED FOR UNKNOWN INDICATION
     Dosage: EVENING
     Dates: start: 20200129
  15. ESOMEP [Concomitant]
     Active Substance: ESOMEPRAZOLE
     Indication: PRODUCT USED FOR UNKNOWN INDICATION
     Dosage: MORNING

REACTIONS (8)
  - Osteomyelitis [Unknown]
  - Drug interaction [Recovered/Resolved]
  - Pancytopenia [Unknown]
  - Venous injury [Unknown]
  - Pneumonia fungal [Unknown]
  - Lung disorder [Unknown]
  - Lung infiltration [Unknown]
  - Sepsis [Unknown]

NARRATIVE: CASE EVENT DATE: 20201228
